FAERS Safety Report 4623637-3 (Version None)
Quarter: 2005Q1

REPORT INFORMATION
  Report Type: 
  Country: None (occurrence: None)
  Receive Date: 20050330
  Receipt Date: 20050322
  Transmission Date: 20050727
  Serious: No
  Sender: FDA-Public Use
  Company Number: 05-01-0109

PATIENT
  Age: 39 Year
  Sex: Female
  Weight: 127.4608 kg

DRUGS (5)
  1. DOXYCYCLINE HYCLATE [Suspect]
     Indication: OTITIS MEDIA
     Dosage: 100MG BID; ORAL
     Route: 048
     Dates: start: 20041207, end: 20041207
  2. DOXYCYCLINE HYCLATE [Suspect]
     Indication: PHARYNGITIS
     Dosage: 100MG BID; ORAL
     Route: 048
     Dates: start: 20041207, end: 20041207
  3. EFFEXOR [Concomitant]
  4. MAXZIDE [Concomitant]
  5. DYAZIDE [Concomitant]

REACTIONS (7)
  - ARTHRALGIA [None]
  - HYPERSENSITIVITY [None]
  - JOINT SWELLING [None]
  - OEDEMA PERIPHERAL [None]
  - REACTION TO MEDICAL AGENT PRESERVATIVES [None]
  - SWELLING FACE [None]
  - TRANSAMINASES INCREASED [None]
